FAERS Safety Report 17315316 (Version 4)
Quarter: 2024Q3

REPORT INFORMATION
  Report Type: Spontaneous
  Country: US (occurrence: US)
  Receive Date: 20200124
  Receipt Date: 20240809
  Transmission Date: 20241016
  Serious: Yes (Hospitalization)
  Sender: VERTEX
  Company Number: US-VERTEX PHARMACEUTICALS-2020-000763

PATIENT
  Age: 28 Year
  Sex: Female

DRUGS (11)
  1. TRIKAFTA [Suspect]
     Active Substance: ELEXACAFTOR\IVACAFTOR\TEZACAFTOR
     Indication: Cystic fibrosis
     Dosage: 2 TABS AM, 1 TAB PM
     Route: 048
     Dates: start: 20191230, end: 20230124
  2. TRIKAFTA [Suspect]
     Active Substance: ELEXACAFTOR\IVACAFTOR\TEZACAFTOR
     Dosage: 1 ORANGE TAB, QD
     Route: 048
     Dates: start: 2023
  3. PERTZYE [Concomitant]
     Active Substance: PANCRELIPASE AMYLASE\PANCRELIPASE LIPASE\PANCRELIPASE PROTEASE
  4. ALBUTEROL [Concomitant]
     Active Substance: ALBUTEROL
  5. SODIUM CHLORIDE [Concomitant]
     Active Substance: SODIUM CHLORIDE
  6. VITAMIN D3 [Concomitant]
     Active Substance: CHOLECALCIFEROL
  7. CALCIUM [Concomitant]
     Active Substance: CALCIUM
  8. ALBUTEROL SULFATE [Concomitant]
     Active Substance: ALBUTEROL SULFATE
  9. LAMICTAL [Concomitant]
     Active Substance: LAMOTRIGINE
  10. CLONIDINE HYDROCHLORIDE [Concomitant]
     Active Substance: CLONIDINE HYDROCHLORIDE
  11. VITAMIN D [Concomitant]
     Active Substance: VITAMIN D NOS

REACTIONS (4)
  - Mania [Not Recovered/Not Resolved]
  - Mental disorder [Unknown]
  - Bipolar disorder [Unknown]
  - Anxiety [Unknown]

NARRATIVE: CASE EVENT DATE: 20200101
